FAERS Safety Report 12202376 (Version 1)
Quarter: 2016Q1

REPORT INFORMATION
  Report Type: Spontaneous
  Country: US (occurrence: US)
  Receive Date: 20160322
  Receipt Date: 20160322
  Transmission Date: 20160526
  Serious: No
  Sender: FDA-Public Use
  Company Number: US-BAYER-2016-054429

PATIENT
  Age: 62 Year
  Sex: Female

DRUGS (1)
  1. CLIMARA [Suspect]
     Active Substance: ESTRADIOL
     Indication: HORMONE REPLACEMENT THERAPY
     Dosage: 0.037 MG/24HR, UNK
     Route: 062
     Dates: start: 2015

REACTIONS (3)
  - Drug ineffective [None]
  - Adverse event [None]
  - Incorrect product storage [None]
